FAERS Safety Report 21263756 (Version 1)
Quarter: 2022Q3

REPORT INFORMATION
  Report Type: Report from Study
  Country: US (occurrence: US)
  Receive Date: 20220829
  Receipt Date: 20220829
  Transmission Date: 20221026
  Serious: Yes (Other)
  Sender: FDA-Public Use
  Company Number: US-CELGENE-USA-20220203084

PATIENT
  Age: 58 Year
  Sex: Male
  Weight: 111.13 kg

DRUGS (15)
  1. REVLIMID [Suspect]
     Active Substance: LENALIDOMIDE
     Indication: Plasma cell myeloma
     Route: 048
     Dates: start: 201911
  2. REVLIMID [Suspect]
     Active Substance: LENALIDOMIDE
     Dosage: 25 MILLIGRAM
     Route: 048
     Dates: start: 202002
  3. REVLIMID [Suspect]
     Active Substance: LENALIDOMIDE
     Dosage: 10 MILLIGRAM
     Route: 048
     Dates: start: 202011
  4. CALTRATE 600+D PLUS [Concomitant]
  5. ASPIRIN [Concomitant]
     Active Substance: ASPIRIN
     Dosage: LOW DOSE ASPIRIN
  6. METFORMIN [Concomitant]
     Active Substance: METFORMIN HYDROCHLORIDE
  7. ZOLPIDEM TARTRATE [Concomitant]
     Active Substance: ZOLPIDEM TARTRATE
  8. ACYCLOVIR [Concomitant]
     Active Substance: ACYCLOVIR
  9. VITAMINS NOS [Concomitant]
     Active Substance: VITAMINS
  10. LISINOPRIL [Concomitant]
     Active Substance: LISINOPRIL
  11. XTAMPZA ER [Concomitant]
     Active Substance: OXYCODONE
  12. JOINT HEALTH PLUS [Concomitant]
  13. OXYCODONE [Concomitant]
     Active Substance: OXYCODONE
  14. ONDANSETRON [Concomitant]
     Active Substance: ONDANSETRON
  15. METHOCARBAMOL [Concomitant]
     Active Substance: METHOCARBAMOL

REACTIONS (3)
  - Withdrawal syndrome [Unknown]
  - Prostatic specific antigen abnormal [Unknown]
  - Renal function test abnormal [Unknown]
